FAERS Safety Report 8604520 (Version 20)
Quarter: 2014Q2

REPORT INFORMATION
  Report Type: Report from Study
  Country: CA (occurrence: CA)
  Receive Date: 20120608
  Receipt Date: 20140417
  Transmission Date: 20141212
  Serious: Yes (Hospitalization, Other)
  Sender: FDA-Public Use
  Company Number: PHHY2012CA010982

PATIENT
  Age: 62 Year
  Sex: Female
  Weight: 47.17 kg

DRUGS (4)
  1. SANDOSTATIN LAR [Suspect]
     Indication: PANCREATIC CARCINOMA METASTATIC
     Dosage: 30 MG, EVERY 4 WEEKS
     Route: 030
     Dates: start: 20120106
  2. METFORMIN [Concomitant]
     Dosage: UNK UKN, UNK
  3. METFORMIN [Concomitant]
     Dosage: UNK UKN, QD
  4. DOMPERIDONE [Concomitant]
     Dosage: UNK UKN, UNK
     Dates: start: 20120725

REACTIONS (44)
  - Pleural effusion [Unknown]
  - Cardiomyopathy [Unknown]
  - Cardiac murmur [Unknown]
  - Ankle fracture [Recovered/Resolved]
  - Fall [Recovered/Resolved]
  - Herpes zoster [Recovering/Resolving]
  - Blood glucose increased [Recovering/Resolving]
  - Blood glucose decreased [Unknown]
  - Musculoskeletal discomfort [Recovering/Resolving]
  - Limb discomfort [Recovering/Resolving]
  - Coccydynia [Unknown]
  - Pollakiuria [Unknown]
  - Eyelid ptosis [Unknown]
  - Pallor [Unknown]
  - Weight decreased [Unknown]
  - Erythema [Unknown]
  - Psoriasis [Unknown]
  - Nasopharyngitis [Unknown]
  - Eye pain [Unknown]
  - Swelling [Unknown]
  - Oedema [Recovered/Resolved]
  - Contusion [Recovered/Resolved]
  - Musculoskeletal chest pain [Unknown]
  - Back pain [Unknown]
  - Sinusitis [Recovered/Resolved]
  - Eructation [Unknown]
  - Urinary tract infection [Unknown]
  - Muscle strain [Unknown]
  - Blood pressure diastolic decreased [Unknown]
  - Weight increased [Unknown]
  - Aphagia [Unknown]
  - Influenza [Recovering/Resolving]
  - Dehydration [Unknown]
  - Fatigue [Not Recovered/Not Resolved]
  - Malaise [Not Recovered/Not Resolved]
  - Asthenia [Unknown]
  - Diarrhoea [Not Recovered/Not Resolved]
  - Constipation [Unknown]
  - Abdominal pain upper [Unknown]
  - Abdominal distension [Unknown]
  - Dyspepsia [Unknown]
  - Vomiting [Recovered/Resolved]
  - Nausea [Unknown]
  - Dyspnoea [Unknown]
